FAERS Safety Report 6243578-8 (Version None)
Quarter: 2009Q2

REPORT INFORMATION
  Report Type: 
  Country: None (occurrence: None)
  Receive Date: 20090624
  Receipt Date: 20090611
  Transmission Date: 20091009
  Serious: Yes (Hospitalization)
  Sender: FDA-Public Use
  Company Number: BE-PFIZER INC-2009219111

PATIENT
  Age: 88 Year

DRUGS (6)
  1. EXEMESTANE [Suspect]
     Indication: BREAST CANCER
     Dosage: 25 MG, 1X/DAY
     Route: 048
     Dates: start: 20070526
  2. CAPOTEN [Concomitant]
     Dosage: UNK
     Route: 048
  3. L-THYROXIN [Concomitant]
     Dosage: UNK
     Route: 048
  4. ASAFLOW [Concomitant]
     Dosage: UNK
     Route: 048
     Dates: start: 20060120, end: 20090204
  5. LASIX [Concomitant]
     Dosage: UNK
     Route: 048
     Dates: start: 20060616
  6. BETAHISTINE [Concomitant]
     Dosage: UNK
     Route: 048
     Dates: start: 20060616

REACTIONS (1)
  - PULMONARY EMBOLISM [None]
